FAERS Safety Report 19855687 (Version 1)
Quarter: 2021Q3

REPORT INFORMATION
  Report Type: Spontaneous
  Country: US (occurrence: US)
  Receive Date: 20210920
  Receipt Date: 20210920
  Transmission Date: 20211014
  Serious: Yes (Death, Other)
  Sender: FDA-Public Use
  Company Number: US-BRISTOL-MYERS SQUIBB COMPANY-BMS-2021-094325

PATIENT
  Age: 80 Year
  Sex: Female
  Weight: 67.12 kg

DRUGS (2)
  1. YERVOY [Suspect]
     Active Substance: IPILIMUMAB
     Indication: PRODUCT USED FOR UNKNOWN INDICATION
     Dosage: 68 MILLIGRAM, Q3WK
     Route: 042
     Dates: start: 20201106
  2. OPDIVO [Suspect]
     Active Substance: NIVOLUMAB
     Indication: PRODUCT USED FOR UNKNOWN INDICATION
     Dosage: 203 MILLIGRAM, Q3WK
     Route: 042
     Dates: start: 20201106

REACTIONS (1)
  - Death [Fatal]
